FAERS Safety Report 9034762 (Version 1)
Quarter: 2013Q1

REPORT INFORMATION
  Report Type: Spontaneous
  Country: US (occurrence: None)
  Receive Date: 20130116
  Receipt Date: 20130116
  Transmission Date: 20140127
  Serious: No
  Sender: FDA-Public Use
  Company Number: None

PATIENT
  Age: 56 Year
  Sex: Female

DRUGS (1)
  1. CLONAZEPAM 1MG. ACCORD H [Suspect]
     Dosage: 1 MG. UP TO 3XDAILY MOUTH
     Route: 048
     Dates: start: 201211

REACTIONS (2)
  - Drug ineffective [None]
  - Product substitution issue [None]
